FAERS Safety Report 26191518 (Version 1)
Quarter: 2025Q4

REPORT INFORMATION
  Report Type: Report from Study
  Country: US (occurrence: US)
  Receive Date: 20251223
  Receipt Date: 20251223
  Transmission Date: 20260118
  Serious: Yes (Other)
  Sender: ALEXION PHARMACEUTICALS
  Company Number: 202510NAM021271US

PATIENT
  Sex: Female

DRUGS (1)
  1. ANIFROLUMAB [Suspect]
     Active Substance: ANIFROLUMAB
     Indication: Systemic lupus erythematosus
     Dosage: 300 MILLIGRAM, Q4W
     Route: 065
     Dates: start: 20240723

REACTIONS (4)
  - Renal cancer [Unknown]
  - Systemic lupus erythematosus [Unknown]
  - Arthralgia [Unknown]
  - Rash [Unknown]
